FAERS Safety Report 6843481-6 (Version None)
Quarter: 2010Q3

REPORT INFORMATION
  Report Type: 
  Country: None (occurrence: None)
  Receive Date: 20100715
  Receipt Date: 20100708
  Transmission Date: 20110219
  Serious: Yes (Life-Threatening)
  Sender: FDA-Public Use
  Company Number: IT-BAXTER-2010BH018181

PATIENT
  Age: 39 Year
  Sex: Female

DRUGS (1)
  1. GAMMAGARD LIQUID [Suspect]
     Indication: HYPOGAMMAGLOBULINAEMIA
     Route: 042
     Dates: start: 20100708, end: 20100708

REACTIONS (3)
  - DYSPNOEA [None]
  - LARYNGEAL OEDEMA [None]
  - TACHYCARDIA [None]
